FAERS Safety Report 9284201 (Version 1)
Quarter: 2013Q2

REPORT INFORMATION
  Report Type: Spontaneous
  Country: US (occurrence: US)
  Receive Date: 20130510
  Receipt Date: 20130510
  Transmission Date: 20140414
  Serious: No
  Sender: FDA-Public Use
  Company Number: US-COVIDIEN/TYCO HEALTHCARE/MALLINCKRODT-T201301408

PATIENT
  Age: 89 Year
  Sex: Male

DRUGS (3)
  1. FENTANYL TRANSDERMAL SYSTEM [Suspect]
     Indication: SPINAL PAIN
     Dosage: 75 MCG/HR
     Route: 062
     Dates: start: 201303, end: 201303
  2. TRAMADOL                           /00599202/ [Concomitant]
     Indication: PAIN
     Dosage: 50 MG, 1 TAB QD
  3. TYLENOL                            /00020001/ [Concomitant]
     Indication: PAIN
     Dosage: 2 PILLS PER DAY

REACTIONS (3)
  - Pain [Not Recovered/Not Resolved]
  - Drug effect delayed [Unknown]
  - Drug effect decreased [Unknown]
